FAERS Safety Report 4279537-4 (Version None)
Quarter: 2004Q1

REPORT INFORMATION
  Report Type: 
  Country: None (occurrence: None)
  Receive Date: 20040123
  Receipt Date: 20040106
  Transmission Date: 20041129
  Serious: Yes (Other)
  Sender: FDA-Public Use
  Company Number: US060310

PATIENT
  Age: 59 Year
  Sex: Female

DRUGS (3)
  1. ENBREL [Suspect]
     Indication: RHEUMATOID ARTHRITIS
     Dosage: 25 MG, TWICE WEEKLY, SC
     Route: 058
     Dates: start: 20010901, end: 20031114
  2. IBUPROFEN [Concomitant]
  3. BENAZEPRIL HCL [Concomitant]

REACTIONS (2)
  - B-CELL LYMPHOMA STAGE IV [None]
  - HYPERTENSION [None]
